FAERS Safety Report 5319658-8 (Version None)
Quarter: 2007Q2

REPORT INFORMATION
  Report Type: 
  Country: None (occurrence: None)
  Receive Date: 20070508
  Receipt Date: 20070424
  Transmission Date: 20071010
  Serious: Yes (Hospitalization, Disabling)
  Sender: FDA-Public Use
  Company Number: NO-MERCK-0703NOR00020

PATIENT
  Age: 82 Year
  Sex: Male
  Weight: 102 kg

DRUGS (9)
  1. ZOCOR [Suspect]
     Indication: CORONARY ARTERY DISEASE
     Route: 048
     Dates: start: 20000101, end: 20050522
  2. METOPROLOL [Concomitant]
     Route: 048
  3. AMLODIPINE BESYLATE [Concomitant]
     Route: 048
  4. VALSARTAN [Concomitant]
     Route: 048
  5. HYDROCHLOROTHIAZIDE [Concomitant]
     Route: 048
  6. ASPIRIN [Concomitant]
     Route: 048
  7. METHOTREXATE [Concomitant]
     Route: 065
  8. FUROSEMIDE [Concomitant]
     Indication: FLUID RETENTION
     Route: 065
  9. ERYTHROMYCIN [Suspect]
     Route: 042
     Dates: start: 20050425, end: 20050506

REACTIONS (6)
  - DRUG INTERACTION [None]
  - MYALGIA [None]
  - MYOPATHY [None]
  - ORTHOSTATIC HYPOTENSION [None]
  - PNEUMONIA PRIMARY ATYPICAL [None]
  - RHABDOMYOLYSIS [None]
